FAERS Safety Report 7360405-6 (Version None)
Quarter: 2011Q1

REPORT INFORMATION
  Report Type: 
  Country: None (occurrence: None)
  Receive Date: 20110318
  Receipt Date: 20100922
  Transmission Date: 20110831
  Serious: Yes (Hospitalization)
  Sender: FDA-Public Use
  Company Number: US-BAYER-201011574NA

PATIENT
  Sex: Female
  Weight: 125 kg

DRUGS (16)
  1. ANTIBIOTICS [Concomitant]
  2. CIPROFLOXACIN HCL [Concomitant]
  3. CLINDAMYCIN [Concomitant]
  4. TETRACYCLINE [Concomitant]
  5. SULFATRIM [Concomitant]
  6. YASMIN [Suspect]
     Indication: ORAL CONTRACEPTION
     Route: 048
     Dates: start: 20040101, end: 20070107
  7. LEVAQUIN [Concomitant]
  8. METRONIDAZOLE [Concomitant]
  9. METHYLPREDNISOLONE [Concomitant]
     Dates: start: 20061204
  10. NITROFURANTOIN MACROCRYSTALLINE [Concomitant]
  11. AZITHROMYCIN [Concomitant]
  12. HYDROXYZINE HCL [Concomitant]
     Indication: RASH
     Dates: start: 20060101, end: 20070615
  13. CLARITHROMYCIN [Concomitant]
  14. SULFAMETHOXAZOLE AND TRIMETHOPRIM [Concomitant]
  15. AMOX TR-K NOS (ANTIBIOTIC) [Concomitant]
  16. UNCODEABLE ^UNCLASSIFIABLE^ [Concomitant]
     Indication: RASH

REACTIONS (4)
  - PULMONARY EMBOLISM [None]
  - INGUINAL MASS [None]
  - DYSPNOEA [None]
  - GROIN PAIN [None]
